FAERS Safety Report 4763909-5 (Version None)
Quarter: 2005Q3

REPORT INFORMATION
  Report Type: 
  Country: None (occurrence: None)
  Receive Date: 20050906
  Receipt Date: 20050822
  Transmission Date: 20060218
  Serious: Yes (Hospitalization)
  Sender: FDA-Public Use
  Company Number: 2005055271

PATIENT
  Sex: Male
  Weight: 90.7194 kg

DRUGS (5)
  1. SUDAFED 12 HOUR [Suspect]
     Dosage: ORAL
     Route: 048
  2. LORATADINE [Concomitant]
  3. CLOPIDOGREL BISULFATE [Concomitant]
  4. ANTIHYPERTENSIVES (ANTIHYPERTENSIVES) [Concomitant]
  5. FEXOFENADINE HYDROCHLORIDE [Concomitant]

REACTIONS (6)
  - ADRENAL DISORDER [None]
  - CATECHOLAMINES URINE INCREASED [None]
  - DIZZINESS [None]
  - FEELING HOT [None]
  - HYPERHIDROSIS [None]
  - LOSS OF CONSCIOUSNESS [None]
